FAERS Safety Report 6555799-5 (Version None)
Quarter: 2010Q1

REPORT INFORMATION
  Report Type: 
  Country: None (occurrence: None)
  Receive Date: 20100128
  Receipt Date: 20100107
  Transmission Date: 20100710
  Serious: No
  Sender: FDA-Public Use
  Company Number: JP-JNJFOC-20100102822

PATIENT
  Age: 4 Decade
  Sex: Female

DRUGS (4)
  1. DUROTEP MT PATCH [Suspect]
     Indication: BACK PAIN
     Route: 062
  2. DUROTEP MT PATCH [Suspect]
     Dosage: 2.1 MG, USING TWO AND THIRD PATCH OR 16.7 MCG/HR(2.8MG) IN TOTAL
     Route: 062
  3. NABUMETONE [Concomitant]
     Route: 048
  4. GABAPENTIN [Concomitant]
     Route: 065

REACTIONS (3)
  - DYSPHAGIA [None]
  - NAUSEA [None]
  - WRONG TECHNIQUE IN DRUG USAGE PROCESS [None]
